FAERS Safety Report 5218814-7 (Version None)
Quarter: 2007Q1

REPORT INFORMATION
  Report Type: 
  Country: None (occurrence: None)
  Receive Date: 20070122
  Receipt Date: 20070122
  Transmission Date: 20070707
  Serious: Yes (Hospitalization)
  Sender: FDA-Public Use
  Company Number: None

PATIENT
  Age: 73 Year
  Sex: Male
  Weight: 87.9978 kg

DRUGS (1)
  1. INDOMETHACIN [Suspect]
     Indication: PAIN
     Dosage: 25MG  AT BEDTIME  PO
     Route: 048
     Dates: start: 20051219

REACTIONS (5)
  - BLOOD PRESSURE DECREASED [None]
  - DIZZINESS [None]
  - FALL [None]
  - MELAENA [None]
  - SYNCOPE [None]
